FAERS Safety Report 5144769-X (Version None)
Quarter: 2006Q4

REPORT INFORMATION
  Report Type: 
  Country: None (occurrence: None)
  Receive Date: 20060912
  Receipt Date: 20060518
  Transmission Date: 20070319
  Serious: Yes (Hospitalization)
  Sender: FDA-Public Use
  Company Number: 1-13876219

PATIENT
  Age: 16 Year
  Sex: Female

DRUGS (1)
  1. BACTRIM DS [Suspect]
     Indication: ACNE
     Dosage: UNK, ORAL
     Route: 048
     Dates: start: 20060501

REACTIONS (1)
  - STEVENS-JOHNSON SYNDROME [None]
